FAERS Safety Report 12201966 (Version 2)
Quarter: 2020Q2

REPORT INFORMATION
  Report Type: Spontaneous
  Country: US (occurrence: US)
  Receive Date: 20160322
  Receipt Date: 20200402
  Transmission Date: 20200713
  Serious: Yes (Death, Other)
  Sender: FDA-Public Use
  Company Number: US-009507513-1603USA009949

PATIENT
  Sex: Male
  Weight: 90.25 kg

DRUGS (5)
  1. VICTOZA [Suspect]
     Active Substance: LIRAGLUTIDE
     Indication: TYPE 2 DIABETES MELLITUS
     Dosage: CONCENTRATION ALSO REPORTED AS: 3 X 3 ML; 1.2 MG ONCE DAILY
     Route: 058
     Dates: start: 20111210
  2. JANUVIA [Suspect]
     Active Substance: SITAGLIPTIN PHOSPHATE
     Dosage: UNK
     Route: 048
     Dates: start: 20070820, end: 200801
  3. BYETTA [Suspect]
     Active Substance: EXENATIDE
     Indication: TYPE 2 DIABETES MELLITUS
     Dosage: UNK, TWICE DAILY
     Dates: start: 20111214, end: 201208
  4. JANUMET [Suspect]
     Active Substance: METFORMIN HYDROCHLORIDE\SITAGLIPTIN PHOSPHATE
     Dosage: UNK, TWICE DAILY
     Route: 048
     Dates: start: 20110321, end: 201112
  5. VICTOZA [Suspect]
     Active Substance: LIRAGLUTIDE
     Dosage: CONCENTRATION ALSO REPORTED AS: 3 X 3 ML; 1.2 MG ONCE DAILY
     Route: 058
     Dates: start: 20120904, end: 201302

REACTIONS (9)
  - Haemorrhoidal haemorrhage [Unknown]
  - Inguinal hernia [Unknown]
  - Diverticulum [Unknown]
  - Pancreatic carcinoma metastatic [Fatal]
  - Aortic arteriosclerosis [Unknown]
  - Metastases to liver [Unknown]
  - Phlebolith [Unknown]
  - Skin degenerative disorder [Unknown]
  - Pulmonary mass [Unknown]

NARRATIVE: CASE EVENT DATE: 201305
